FAERS Safety Report 24836425 (Version 1)
Quarter: 2025Q1

REPORT INFORMATION
  Report Type: Report from Study
  Country: BR (occurrence: BR)
  Receive Date: 20250113
  Receipt Date: 20250113
  Transmission Date: 20250409
  Serious: Yes (Hospitalization, Other)
  Sender: BIOVITRUM
  Company Number: BR-ASTRAZENECA-202501SAM003296BR

PATIENT
  Age: 10 Month
  Sex: Male

DRUGS (1)
  1. PALIVIZUMAB [Suspect]
     Active Substance: PALIVIZUMAB
     Indication: Antiviral prophylaxis
     Route: 065

REACTIONS (3)
  - Bronchiolitis [Recovering/Resolving]
  - Cough [Unknown]
  - Respiratory rate [Unknown]

NARRATIVE: CASE EVENT DATE: 20241230
